FAERS Safety Report 8816843 (Version 1)
Quarter: 2012Q4

REPORT INFORMATION
  Report Type: Spontaneous
  Country: US (occurrence: None)
  Receive Date: 20121001
  Receipt Date: 20121001
  Transmission Date: 20130627
  Serious: Yes (Other)
  Sender: FDA-Public Use
  Company Number: None

PATIENT
  Age: 34 Year
  Sex: Female
  Weight: 119.75 kg

DRUGS (1)
  1. MIRENA [Suspect]
     Dosage: 5 YEARS INTRA-UTERINE
     Route: 015
     Dates: start: 20070830, end: 20120920

REACTIONS (7)
  - Abdominal pain upper [None]
  - Pain [None]
  - Muscle spasms [None]
  - Back pain [None]
  - Pain in extremity [None]
  - Feeling abnormal [None]
  - Hypoaesthesia [None]
